FAERS Safety Report 7465397-7 (Version None)
Quarter: 2011Q2

REPORT INFORMATION
  Report Type: 
  Country: None (occurrence: None)
  Receive Date: 20110428
  Receipt Date: 20110414
  Transmission Date: 20111010
  Serious: Yes (Other)
  Sender: FDA-Public Use
  Company Number: NGX_00397_2011

PATIENT
  Sex: Male

DRUGS (1)
  1. QUTENZA [Suspect]
     Indication: PAIN
     Dosage: DF PATCHAT INGUINAL AREA, TOPICAL
     Route: 061
     Dates: start: 20110414, end: 20110414

REACTIONS (4)
  - HYPOTENSION [None]
  - APPLICATION SITE PAIN [None]
  - PRESYNCOPE [None]
  - BRADYCARDIA [None]
